FAERS Safety Report 6736465-X (Version None)
Quarter: 2010Q2

REPORT INFORMATION
  Report Type: 
  Country: None (occurrence: None)
  Receive Date: 20100521
  Receipt Date: 20100512
  Transmission Date: 20101027
  Serious: Yes (Death, Hospitalization)
  Sender: FDA-Public Use
  Company Number: CA-JNJFOC-20100505837

PATIENT
  Sex: Female
  Weight: 75 kg

DRUGS (8)
  1. REMICADE [Suspect]
     Indication: RHEUMATOID ARTHRITIS
     Dosage: RECEIVED 76 INFUSIONS
     Route: 042
  2. POTASSIUM CHLORIDE [Concomitant]
  3. METHOTREXATE [Concomitant]
  4. PEPCID [Concomitant]
  5. FUROSEMIDE [Concomitant]
  6. FOLIC ACID [Concomitant]
  7. OXYBUTYNIN [Concomitant]
  8. ASPIRIN [Concomitant]

REACTIONS (4)
  - DEATH [None]
  - FALL [None]
  - HEAD INJURY [None]
  - PNEUMONIA [None]
